FAERS Safety Report 25447933 (Version 1)
Quarter: 2025Q2

REPORT INFORMATION
  Report Type: Report from Study
  Country: PH (occurrence: PH)
  Receive Date: 20250617
  Receipt Date: 20250617
  Transmission Date: 20250716
  Serious: Yes (Hospitalization)
  Sender: OTSUKA
  Company Number: PH-MMM-Otsuka-KWONYH5A

PATIENT

DRUGS (2)
  1. TOLVAPTAN [Suspect]
     Active Substance: TOLVAPTAN
     Indication: Cardiac failure congestive
     Dosage: 1.5 DF, DAILY (15 MG ONE AND HALF TABLET DAILY)
     Route: 048
     Dates: start: 202408, end: 202506
  2. TOLVAPTAN [Suspect]
     Active Substance: TOLVAPTAN
     Indication: Hypervolaemia
     Dosage: 0.5 DF, DAILY (15 MG ONE AND HALF TABLET DAILY)
     Route: 048
     Dates: start: 202408, end: 202506

REACTIONS (3)
  - Dialysis [Unknown]
  - Wrong technique in product usage process [Unknown]
  - Overdose [Unknown]

NARRATIVE: CASE EVENT DATE: 20240801
